FAERS Safety Report 7689501-0 (Version None)
Quarter: 2011Q3

REPORT INFORMATION
  Report Type: 
  Country: None (occurrence: None)
  Receive Date: 20110817
  Receipt Date: 20110525
  Transmission Date: 20111222
  Serious: No
  Sender: FDA-Public Use
  Company Number: US-TYCO HEALTHCARE/MALLINCKRODT-T201101087

PATIENT
  Sex: Male

DRUGS (12)
  1. GABAPENTIN [Concomitant]
     Dosage: 400 MG, UNK
  2. NEXIUM [Concomitant]
     Dosage: 40 UNK, UNK
  3. FENTANYL-100 [Suspect]
     Indication: PAIN
  4. METOCARBAMOL [Concomitant]
     Dosage: 750 MG, UNK
  5. ADVAIR DISKUS 100/50 [Concomitant]
  6. FENTANYL-100 [Suspect]
     Indication: NERVE INJURY
     Dosage: 75 UG/HR, ONE EVERY 72 HOURS
     Route: 062
     Dates: start: 20110511
  7. KLONOPIN [Concomitant]
     Dosage: 1 MG, UNK
  8. ZESTRIL [Concomitant]
     Dosage: 10 MG, UNK
  9. OXYCODONE HCL AND ACETAMINOPHEN [Concomitant]
     Indication: BREAKTHROUGH PAIN
  10. FENTANYL [Concomitant]
     Indication: NERVE INJURY
     Dosage: 75 UG/HR EVERY 72 HOURS
     Dates: start: 20100301, end: 20110501
  11. PROAIR HFA [Concomitant]
  12. FENTANYL [Concomitant]
     Indication: PAIN

REACTIONS (3)
  - ASTHENIA [None]
  - DIZZINESS [None]
  - DRUG EFFECT INCREASED [None]
